FAERS Safety Report 15411018 (Version 7)
Quarter: 2019Q1

REPORT INFORMATION
  Report Type: Spontaneous
  Country: US (occurrence: US)
  Receive Date: 20180921
  Receipt Date: 20190326
  Transmission Date: 20190417
  Serious: Yes (Hospitalization, Other)
  Sender: FDA-Public Use
  Company Number: US-BRISTOL-MYERS SQUIBB COMPANY-BMS-2018-086929

PATIENT
  Age: 59 Year
  Sex: Male
  Weight: 78.91 kg

DRUGS (2)
  1. ORENCIA [Suspect]
     Active Substance: ABATACEPT
     Indication: PRODUCT USED FOR UNKNOWN INDICATION
     Dosage: 125 MG, QWK
     Route: 058
     Dates: start: 201902
  2. ORENCIA [Suspect]
     Active Substance: ABATACEPT
     Indication: RHEUMATOID ARTHRITIS
     Dosage: 125 MG, QWK
     Route: 058
     Dates: start: 201808

REACTIONS (5)
  - Post procedural complication [Unknown]
  - Nephrolithiasis [Unknown]
  - Gallbladder disorder [Unknown]
  - Nasopharyngitis [Unknown]
  - Appendix disorder [Unknown]

NARRATIVE: CASE EVENT DATE: 20181029
